FAERS Safety Report 5156883-3 (Version None)
Quarter: 2006Q4

REPORT INFORMATION
  Report Type: 
  Country: None (occurrence: None)
  Receive Date: 20060918
  Receipt Date: 20060711
  Transmission Date: 20070319
  Serious: Yes (Other)
  Sender: FDA-Public Use
  Company Number: US-JNJFOC-20060602632

PATIENT
  Age: 57 Year
  Sex: Female
  Weight: 100.2449 kg

DRUGS (15)
  1. TOPAMAX [Suspect]
     Indication: MIGRAINE PROPHYLAXIS
     Dosage: 100 MG, 1 IN 1 DAY, ORAL
     Route: 048
     Dates: start: 19980101
  2. LEVOTHYROID (LEVOTHYROXINE) [Concomitant]
  3. FUROSEMIDE [Concomitant]
  4. INDERAL LA [Concomitant]
  5. TRICOR [Concomitant]
  6. NEURONTIN [Concomitant]
  7. XANAFLEX (TIZANIDINE HYDROCHLORIDE) [Concomitant]
  8. AVANDIA [Concomitant]
  9. METFORMIN [Concomitant]
  10. HUMALOG 75/25 (HUMALOG MIX 25) [Concomitant]
  11. BYETTA [Concomitant]
  12. LEXAPRO (SSRI) [Concomitant]
  13. ZOCOR [Concomitant]
  14. BENICAR [Concomitant]
  15. ASPIRIN [Concomitant]

REACTIONS (3)
  - ANHIDROSIS [None]
  - BLISTER [None]
  - BODY TEMPERATURE INCREASED [None]
